FAERS Safety Report 19320659 (Version 1)
Quarter: 2021Q2

REPORT INFORMATION
  Report Type: Spontaneous
  Country: US (occurrence: US)
  Receive Date: 20210527
  Receipt Date: 20210527
  Transmission Date: 20210717
  Serious: Yes (Other)
  Sender: FDA-Public Use
  Company Number: US-SUNOVION-2021SUN001926

PATIENT
  Age: 48 Year
  Sex: Male

DRUGS (1)
  1. LATUDA [Suspect]
     Active Substance: LURASIDONE HYDROCHLORIDE
     Dosage: 20 MG, QD
     Route: 048
     Dates: start: 2016

REACTIONS (5)
  - Therapy cessation [Unknown]
  - Initial insomnia [Unknown]
  - Depression [Unknown]
  - Somnolence [Unknown]
  - Bipolar disorder [Unknown]
